FAERS Safety Report 15221338 (Version 1)
Quarter: 2018Q3

REPORT INFORMATION
  Report Type: Report from Study
  Country: EC (occurrence: EC)
  Receive Date: 20180731
  Receipt Date: 20180731
  Transmission Date: 20181010
  Serious: Yes (Hospitalization)
  Sender: FDA-Public Use
  Company Number: PHHY2018EC056822

PATIENT
  Age: 72 Year
  Sex: Female

DRUGS (1)
  1. ENTRESTO [Suspect]
     Active Substance: SACUBITRIL\VALSARTAN
     Indication: CARDIAC FAILURE
     Dosage: 100 MG (49 MG SACUBITRIL, 51 MG VALSARTAN), QD
     Route: 048
     Dates: start: 20170601

REACTIONS (2)
  - Inappropriate schedule of drug administration [Unknown]
  - Medical device site infection [Unknown]

NARRATIVE: CASE EVENT DATE: 20180713
